FAERS Safety Report 9563039 (Version 2)
Quarter: 2013Q3

REPORT INFORMATION
  Report Type: Spontaneous
  Country: US (occurrence: US)
  Receive Date: 20130927
  Receipt Date: 20130927
  Transmission Date: 20140515
  Serious: Yes (Hospitalization)
  Sender: FDA-Public Use
  Company Number: US-BRISTOL-MYERS SQUIBB COMPANY-16839433

PATIENT
  Age: 65 Year
  Sex: Male

DRUGS (14)
  1. ONGLYZA TABS 5 MG [Suspect]
     Indication: TYPE 2 DIABETES MELLITUS
     Route: 048
     Dates: start: 20120612, end: 20120711
  2. ACETYLSALICYLIC ACID [Concomitant]
  3. PRILOSEC [Concomitant]
     Dosage: 20MG CAPS
     Route: 048
  4. ZOCOR [Concomitant]
     Dosage: 10MG TAB
     Route: 048
  5. FISH OIL [Concomitant]
  6. FENOFIBRATE [Concomitant]
     Dosage: LOFIBRA
     Route: 048
  7. PROSCAR [Concomitant]
     Dosage: TAB
     Route: 048
  8. HYZAAR [Concomitant]
     Dosage: 1 DF: 125/50MG
  9. VITAMIN C [Concomitant]
  10. GLUCOTROL [Concomitant]
     Dosage: 2 TABS
     Route: 048
  11. ZYRTEC [Concomitant]
  12. PRINZIDE [Concomitant]
     Dosage: 1 DF:12.5/10MG
  13. VITAMIN D3 [Concomitant]
  14. ZESTORETIC [Concomitant]
     Dosage: 1 DF: 20-12.5MG, 1TAB
     Route: 048

REACTIONS (1)
  - Pancreatitis acute [Unknown]
